FAERS Safety Report 14068115 (Version 1)
Quarter: 2017Q4

REPORT INFORMATION
  Report Type: Spontaneous
  Country: FR (occurrence: FR)
  Receive Date: 20171010
  Receipt Date: 20171010
  Transmission Date: 20180321
  Serious: Yes (Other)
  Sender: FDA-Public Use
  Company Number: FR-MERCK KGAA-2029396

PATIENT
  Age: 70 Year
  Sex: Female

DRUGS (1)
  1. NOVOTHYROX [Suspect]
     Active Substance: LEVOTHYROXINE SODIUM
     Indication: PRODUCT USED FOR UNKNOWN INDICATION
     Dates: start: 20170920

REACTIONS (7)
  - Vision blurred [Unknown]
  - Hypertension [Recovering/Resolving]
  - Heart rate irregular [Unknown]
  - Dizziness [Unknown]
  - Inflammation [Not Recovered/Not Resolved]
  - Tinnitus [Unknown]
  - Palatal swelling [Unknown]
